FAERS Safety Report 4715001-3 (Version None)
Quarter: 2005Q3

REPORT INFORMATION
  Report Type: 
  Country: None (occurrence: None)
  Receive Date: 20050715
  Receipt Date: 20050709
  Transmission Date: 20060218
  Serious: Yes (Other)
  Sender: FDA-Public Use
  Company Number: 200515707US

PATIENT
  Sex: Female
  Weight: 113 kg

DRUGS (7)
  1. LANTUS [Suspect]
     Indication: DIABETES MELLITUS NON-INSULIN-DEPENDENT
     Dosage: DOSE UNIT: UNITS
     Dates: start: 20050601, end: 20050707
  2. OPTICLIK (INSULIN INJECTION PEN) [Suspect]
     Dosage: DOSE: NOT PROVIDED
     Dates: start: 20050601, end: 20050707
  3. OXYCONTIN [Concomitant]
     Dosage: DOSE: NOT PROVIDED
  4. XANAX [Concomitant]
     Dosage: DOSE: NOT PROVIDED
  5. TOPROL-XL [Concomitant]
     Dosage: DOSE: NOT PROVIDED
  6. MAXALT [Concomitant]
     Dosage: DOSE: NOT PROVIDED
  7. AXERT [Concomitant]
     Dosage: DOSE: NOT PROVIDED

REACTIONS (3)
  - DEPRESSED LEVEL OF CONSCIOUSNESS [None]
  - SOMNOLENCE [None]
  - THERAPEUTIC RESPONSE UNEXPECTED [None]
